FAERS Safety Report 24140729 (Version 1)
Quarter: 2024Q3

REPORT INFORMATION
  Report Type: Spontaneous
  Country: US (occurrence: None)
  Receive Date: 20240725
  Receipt Date: 20240725
  Transmission Date: 20241016
  Serious: Yes (unspecified)
  Sender: Public
  Company Number: None

PATIENT
  Age: 24 Year
  Sex: Male
  Weight: 149.4 kg

DRUGS (1)
  1. ALTUVIIIO [Suspect]
     Active Substance: EFANESOCTOCOG ALFA
     Indication: Factor VIII deficiency
     Dosage: OTHER FREQUENCY : Q7 DAYS + Q48H PRN;?
     Route: 040
     Dates: start: 20240603, end: 20240722

REACTIONS (4)
  - Infusion related reaction [None]
  - Dyspnoea [None]
  - Asthenia [None]
  - Throat irritation [None]

NARRATIVE: CASE EVENT DATE: 20240722
